FAERS Safety Report 6093842-0 (Version None)
Quarter: 2009Q1

REPORT INFORMATION
  Report Type: 
  Country: None (occurrence: None)
  Receive Date: 20090224
  Receipt Date: 20090224
  Transmission Date: 20090719
  Serious: Yes (Hospitalization)
  Sender: FDA-Public Use
  Company Number: None

PATIENT
  Age: 52 Year
  Sex: Male
  Weight: 83.9154 kg

DRUGS (1)
  1. MOXIFLOXACIN HCL [Suspect]
     Indication: EPIDIDYMITIS
     Dosage: 1 PILL ONLY PO ONE PILL ONLY
     Route: 048
     Dates: start: 20081222, end: 20081222

REACTIONS (6)
  - CHILLS [None]
  - FEAR [None]
  - FEELING ABNORMAL [None]
  - PANIC ATTACK [None]
  - PANIC REACTION [None]
  - PARAESTHESIA [None]
